FAERS Safety Report 4274746-2 (Version None)
Quarter: 2004Q1

REPORT INFORMATION
  Report Type: 
  Country: None (occurrence: None)
  Receive Date: 20040115
  Receipt Date: 20031226
  Transmission Date: 20041129
  Serious: Yes (Other)
  Sender: FDA-Public Use
  Company Number: JP_040102440

PATIENT
  Age: 32 Year
  Sex: Male

DRUGS (1)
  1. HUMULIN-HUMAN INSULIN (RDNA) UNKNOWN FORMULATION (HU [Suspect]
     Indication: DIABETES MELLITUS INSULIN-DEPENDENT

REACTIONS (4)
  - BODY TEMPERATURE DECREASED [None]
  - DYSLALIA [None]
  - HEMIPLEGIA TRANSIENT [None]
  - HYPOGLYCAEMIA [None]
